FAERS Safety Report 12431898 (Version 1)
Quarter: 2016Q2

REPORT INFORMATION
  Report Type: Report from Study
  Country: BR (occurrence: BR)
  Receive Date: 20160603
  Receipt Date: 20160603
  Transmission Date: 20160815
  Serious: Yes (Other)
  Sender: FDA-Public Use
  Company Number: PHHY2015BR109598

PATIENT
  Sex: Female
  Weight: 51 kg

DRUGS (1)
  1. ACLASTA [Suspect]
     Active Substance: ZOLEDRONIC ACID
     Indication: OSTEOPOROSIS
     Dosage: 5 MG, Q12MO
     Route: 058

REACTIONS (5)
  - Bacterial infection [Recovering/Resolving]
  - Gastric infection [Recovering/Resolving]
  - Dry mouth [Recovering/Resolving]
  - Pathogen resistance [Recovering/Resolving]
  - Gastrointestinal disorder [Recovering/Resolving]
